FAERS Safety Report 20620822 (Version 2)
Quarter: 2022Q3

REPORT INFORMATION
  Report Type: Report from Study
  Country: GB (occurrence: GB)
  Receive Date: 20220322
  Receipt Date: 20220702
  Transmission Date: 20221027
  Serious: Yes (Hospitalization, Other)
  Sender: FDA-Public Use
  Company Number: GB-BRISTOL-MYERS SQUIBB COMPANY-BMS-2015-094448

PATIENT
  Age: 43 Year
  Sex: Female

DRUGS (70)
  1. PACLITAXEL [Suspect]
     Active Substance: PACLITAXEL
     Indication: Breast cancer metastatic
     Dosage: 567 MILLIGRAM TOTAL
     Route: 042
     Dates: start: 20150616, end: 20150616
  2. PACLITAXEL [Suspect]
     Active Substance: PACLITAXEL
     Dosage: 450 MILLIGRAM, Q2WK
     Route: 042
     Dates: start: 20150730, end: 20150730
  3. PACLITAXEL [Suspect]
     Active Substance: PACLITAXEL
     Dosage: 450 MILLIGRAM, Q3WK
     Route: 042
     Dates: start: 20150730, end: 20150820
  4. PACLITAXEL [Suspect]
     Active Substance: PACLITAXEL
     Dosage: 340 MG,Q3W (LOADING DOSE)
     Route: 042
     Dates: start: 20150820, end: 20150820
  5. PACLITAXEL [Suspect]
     Active Substance: PACLITAXEL
     Dosage: 340 MILLIGRAM, Q3WK
     Route: 042
     Dates: start: 20150910, end: 20150910
  6. PACLITAXEL [Suspect]
     Active Substance: PACLITAXEL
     Dosage: 340 MILLIGRAM, Q3WK
     Route: 042
     Dates: start: 20151022, end: 20151022
  7. PACLITAXEL [Suspect]
     Active Substance: PACLITAXEL
     Dosage: 450 MILLIGRAM, Q3WK
     Route: 042
     Dates: start: 20150820, end: 20150820
  8. PACLITAXEL [Suspect]
     Active Substance: PACLITAXEL
     Dosage: 420 MILLIGRAM, Q3WK
     Route: 042
     Dates: start: 20150709, end: 20150709
  9. PACLITAXEL [Suspect]
     Active Substance: PACLITAXEL
     Dosage: 450 MILLIGRAM, Q3WK
     Route: 042
     Dates: start: 20150820, end: 20150820
  10. PACLITAXEL [Suspect]
     Active Substance: PACLITAXEL
     Dosage: 450 MILLIGRAM, Q2WK
     Route: 042
     Dates: start: 20150820, end: 20150820
  11. PACLITAXEL [Suspect]
     Active Substance: PACLITAXEL
     Dosage: 1350 MILLIGRAM, QWK
     Route: 042
     Dates: start: 20150730, end: 20150730
  12. PACLITAXEL [Suspect]
     Active Substance: PACLITAXEL
     Indication: Breast cancer metastatic
     Dosage: 450 MILLIGRAM Q3WK (LOADING DOSE)
     Route: 042
     Dates: start: 20150730, end: 20150730
  13. PACLITAXEL [Suspect]
     Active Substance: PACLITAXEL
     Dosage: 340 MILLIGRAM, Q3WK
     Route: 042
     Dates: start: 20150820, end: 20150820
  14. PACLITAXEL [Suspect]
     Active Substance: PACLITAXEL
     Dosage: 340 MILLIGRAM, Q3WK
     Route: 042
     Dates: start: 20150910
  15. PACLITAXEL [Suspect]
     Active Substance: PACLITAXEL
     Dosage: 340 MILLIGRAM, Q3WK
     Route: 042
     Dates: start: 20151022
  16. PACLITAXEL [Suspect]
     Active Substance: PACLITAXEL
     Dosage: 340 MILLIGRAM, Q3WK
     Route: 042
     Dates: start: 20150609, end: 20150609
  17. TRASTUZUMAB [Suspect]
     Active Substance: TRASTUZUMAB
     Indication: Breast cancer metastatic
     Dosage: 1260 MG, 1/WEEK (420 MILLIGRAM)
     Route: 041
     Dates: start: 20150609
  18. TRASTUZUMAB [Suspect]
     Active Substance: TRASTUZUMAB
     Dosage: 567 MILLIGRAM, TOTAL (LOADING DOSE) (PHARMACEUTICAL DOSAGE FORM: 230)
     Route: 041
     Dates: start: 20150616, end: 20150616
  19. TRASTUZUMAB [Suspect]
     Active Substance: TRASTUZUMAB
     Dosage: 420 MG, Q3W (MAINTENANCE DOSE)
     Route: 042
     Dates: start: 20150709, end: 20150709
  20. TRASTUZUMAB [Suspect]
     Active Substance: TRASTUZUMAB
     Dosage: 420 MG, TIW (MAINTAINANCE DOSE)
     Route: 041
     Dates: start: 20150709, end: 20150709
  21. TRASTUZUMAB [Suspect]
     Active Substance: TRASTUZUMAB
     Dosage: 567 MG, QD (LOADING DOSE)
     Route: 041
     Dates: start: 20150616, end: 20150616
  22. TRASTUZUMAB [Suspect]
     Active Substance: TRASTUZUMAB
     Dosage: 420MG (MAINTAINANCE DOSE.)
     Route: 042
     Dates: start: 20150709, end: 20150709
  23. PERTUZUMAB [Suspect]
     Active Substance: PERTUZUMAB
     Indication: Product used for unknown indication
     Dosage: 420 MG, 1/WEEK
     Route: 041
     Dates: start: 20150709, end: 20150709
  24. PERTUZUMAB [Suspect]
     Active Substance: PERTUZUMAB
     Dosage: 567 MG, 1/WEEK
     Route: 041
     Dates: start: 20150616, end: 20150616
  25. HERCEPTIN [Suspect]
     Active Substance: TRASTUZUMAB
     Indication: Breast cancer metastatic
     Dosage: 420 MILLIGRAM, Q3WK (FOR LOADING DOSE; DRUG STRUCTURE DOSAGE NUMBER: 567MG, DRUG INTERVAL DOSAGE UNI
     Route: 042
     Dates: start: 20150709, end: 20150709
  26. HERCEPTIN [Suspect]
     Active Substance: TRASTUZUMAB
     Dosage: 420 MG, Q3W
     Route: 042
     Dates: start: 20150709, end: 20150709
  27. HERCEPTIN [Suspect]
     Active Substance: TRASTUZUMAB
     Dosage: 420 MILLIGRAM, Q3WK (FOR LOADING DOSE; DRUG STRUCTURE DOSAGE NUMBER: 567MG, DRUG INTERVAL DOSAGE UNI
     Route: 042
     Dates: start: 20150709, end: 20150709
  28. HERCEPTIN [Suspect]
     Active Substance: TRASTUZUMAB
     Dosage: 567 MG, QD FOR LOADING DOSE; DRUG STRUCTURE DOSAGE NUMBER: 567MG, DRUG INTERVAL DOSAGE UNIT NUMBER:
     Route: 042
     Dates: start: 20150616, end: 20150616
  29. HERCEPTIN [Suspect]
     Active Substance: TRASTUZUMAB
     Dosage: 420 MG, Q3W (MAINTAINANCE DOSE)
     Route: 042
     Dates: start: 20150709
  30. HERCEPTIN [Suspect]
     Active Substance: TRASTUZUMAB
     Dosage: 420 MG, BIW (420 MG, Q3W)
     Route: 042
     Dates: start: 20150709, end: 20150709
  31. IMODIUM [Suspect]
     Active Substance: LOPERAMIDE HYDROCHLORIDE
     Indication: Diarrhoea
     Dosage: 2 MG, PRN; AS NECESSARY
     Route: 048
  32. IMODIUM [Suspect]
     Active Substance: LOPERAMIDE HYDROCHLORIDE
     Indication: Diarrhoea
     Dosage: 2 MG, PRN; AS NECESSARY
     Route: 048
  33. IMODIUM [Suspect]
     Active Substance: LOPERAMIDE HYDROCHLORIDE
     Dosage: 2 MG, PRN; AS NECESSARY
     Route: 048
  34. IMODIUM [Suspect]
     Active Substance: LOPERAMIDE HYDROCHLORIDE
     Dosage: 2 MG, AS NECESSARY
     Route: 048
  35. DOCETAXEL [Suspect]
     Active Substance: DOCETAXEL
     Indication: Breast cancer metastatic
     Dosage: 130 MILLIGRAM, Q3WK
     Route: 042
     Dates: start: 20150616, end: 20150616
  36. DOCETAXEL [Suspect]
     Active Substance: DOCETAXEL
     Dosage: 130 MILLIGRAM, Q3WK
     Route: 042
     Dates: start: 20150616, end: 20150709
  37. DOCETAXEL [Suspect]
     Active Substance: DOCETAXEL
     Dosage: 130 MG, QOW, 130 MG, BIW (130 MG, Q3W)
     Route: 042
     Dates: start: 20150709, end: 20150709
  38. DOCETAXEL [Suspect]
     Active Substance: DOCETAXEL
     Dosage: 130 MILLIGRAM, Q2WK
     Route: 042
     Dates: start: 20150709, end: 20150709
  39. DOCETAXEL [Suspect]
     Active Substance: DOCETAXEL
     Dosage: 260 MILLIGRAM
     Route: 042
  40. BENZYDAMINE [Suspect]
     Active Substance: BENZYDAMINE
     Indication: Mucosal inflammation
     Dosage: LIQUID MOUTHWASH 15 ML/CM3
     Route: 048
  41. TRAMADOL [Concomitant]
     Active Substance: TRAMADOL
     Indication: Pain
     Dosage: 100 MG, QD
     Route: 048
  42. TRAMADOL [Concomitant]
     Active Substance: TRAMADOL
     Dosage: 50 MG,QD
     Route: 048
  43. TRAMADOL [Concomitant]
     Active Substance: TRAMADOL
     Dosage: 50 MG,QD
     Route: 048
  44. TRAMADOL [Concomitant]
     Active Substance: TRAMADOL
     Dosage: 100 MG, QD
     Route: 048
  45. TRAMADOL [Concomitant]
     Active Substance: TRAMADOL
     Route: 048
  46. TRAMADOL [Concomitant]
     Active Substance: TRAMADOL
     Dosage: 50 MG,QD
     Route: 048
  47. TRAMADOL [Concomitant]
     Active Substance: TRAMADOL
     Dosage: 50 MG, QD, 1 DAY
     Route: 048
  48. TRAMADOL [Concomitant]
     Active Substance: TRAMADOL
     Dosage: 100 MILLIGRAM, QD
     Route: 048
  49. TRAMADOL [Concomitant]
     Active Substance: TRAMADOL
     Dosage: 100 MG, QD (PHARMACEUTICAL DOSE FORM: 245)
     Route: 048
  50. HYDROCORTISONE [Concomitant]
     Active Substance: HYDROCORTISONE
     Dosage: 100 MG, QD
     Route: 041
     Dates: start: 20150709, end: 20150709
  51. HYDROCORTISONE [Concomitant]
     Active Substance: HYDROCORTISONE
     Indication: Product used for unknown indication
  52. COCODAMOL [Concomitant]
     Active Substance: ACETAMINOPHEN\CODEINE PHOSPHATE
     Indication: Product used for unknown indication
     Dosage: 2000 MG, QD
     Route: 048
  53. COCODAMOL [Concomitant]
     Active Substance: ACETAMINOPHEN\CODEINE PHOSPHATE
     Dosage: 500 MG,QD
     Route: 048
  54. COCODAMOL [Concomitant]
     Active Substance: ACETAMINOPHEN\CODEINE PHOSPHATE
     Dosage: 2000 MG, QD
     Route: 048
  55. COCODAMOL [Concomitant]
     Active Substance: ACETAMINOPHEN\CODEINE PHOSPHATE
     Dosage: 500 MG,QD
     Route: 048
  56. COCODAMOL [Concomitant]
     Active Substance: ACETAMINOPHEN\CODEINE PHOSPHATE
     Dosage: 500 MG,QD
     Route: 048
  57. COCODAMOL [Concomitant]
     Active Substance: ACETAMINOPHEN\CODEINE PHOSPHATE
     Dosage: 2000 MG, QD
     Route: 048
  58. COCODAMOL [Concomitant]
     Active Substance: ACETAMINOPHEN\CODEINE PHOSPHATE
     Dosage: 2000 MILLIGRAM, QD
     Route: 048
  59. COCODAMOL [Concomitant]
     Active Substance: ACETAMINOPHEN\CODEINE PHOSPHATE
     Dosage: 500 MILLIGRAM, QD
     Route: 048
  60. COCODAMOL [Concomitant]
     Active Substance: ACETAMINOPHEN\CODEINE PHOSPHATE
     Dosage: 2000 MG, QD (PHARMACEUTICAL DOSE FORM: 245)
     Route: 048
  61. COCODAMOL [Concomitant]
     Active Substance: ACETAMINOPHEN\CODEINE PHOSPHATE
     Dosage: 500 MG, QD (PHARMACEUTICAL DOSE FORM: 245)
     Route: 048
  62. DOMPERIDONE [Concomitant]
     Active Substance: DOMPERIDONE
     Indication: Product used for unknown indication
     Dosage: 10 MG, QD (30 MILLIGRAM, PHARMACEUTICAL DOSE FORM: 245)
     Route: 048
     Dates: start: 20150709
  63. DOMPERIDONE [Concomitant]
     Active Substance: DOMPERIDONE
     Dosage: 30 MG, QD
     Route: 048
     Dates: start: 20190709
  64. CHLORPHENIRAMINE MALEATE [Concomitant]
     Active Substance: CHLORPHENIRAMINE MALEATE
     Indication: Product used for unknown indication
     Dosage: 10 MG, QD (PHARMACEUTICAL DOSE FORM: 120)
     Route: 041
     Dates: start: 20150709, end: 20150709
  65. CHLORPHENIRAMINE MALEATE [Concomitant]
     Active Substance: CHLORPHENIRAMINE MALEATE
  66. AMOXICILLIN\CLAVULANATE POTASSIUM [Concomitant]
     Active Substance: AMOXICILLIN\CLAVULANATE POTASSIUM
     Indication: Cough
     Dosage: UNK (COUGH WITH YELLOW SPUTUM)
     Route: 048
     Dates: start: 20180110, end: 20180117
  67. AMOXICILLIN\CLAVULANATE POTASSIUM [Concomitant]
     Active Substance: AMOXICILLIN\CLAVULANATE POTASSIUM
     Indication: Productive cough
  68. METFORMIN [Concomitant]
     Active Substance: METFORMIN HYDROCHLORIDE
     Indication: Diabetes mellitus
     Dosage: 1 GRAM, QD
     Route: 048
  69. METFORMIN [Concomitant]
     Active Substance: METFORMIN HYDROCHLORIDE
     Dosage: 2 GRAM, QD
     Route: 048
  70. METFORMIN [Concomitant]
     Active Substance: METFORMIN HYDROCHLORIDE
     Dosage: 2 GRAM, QD (PHARMACEUTICAL DOSE FORM: 245)
     Route: 048

REACTIONS (9)
  - Nausea [Not Recovered/Not Resolved]
  - Febrile neutropenia [Recovered/Resolved]
  - Chest pain [Not Recovered/Not Resolved]
  - Mucosal inflammation [Recovered/Resolved]
  - Diarrhoea [Recovered/Resolved]
  - Fatigue [Recovered/Resolved]
  - Vomiting [Not Recovered/Not Resolved]
  - Neuropathy peripheral [Not Recovered/Not Resolved]
  - Swelling [Not Recovered/Not Resolved]

NARRATIVE: CASE EVENT DATE: 20150908
